FAERS Safety Report 7478794-0 (Version None)
Quarter: 2011Q2

REPORT INFORMATION
  Report Type: 
  Country: None (occurrence: None)
  Receive Date: 20110513
  Receipt Date: 20110509
  Transmission Date: 20111010
  Serious: Yes (Hospitalization, Other)
  Sender: FDA-Public Use
  Company Number: US-ROCHE-761425

PATIENT
  Sex: Female
  Weight: 59 kg

DRUGS (1)
  1. BONIVA [Suspect]
     Dosage: FORM:PILL
     Route: 065
     Dates: start: 20110216, end: 20110216

REACTIONS (17)
  - OEDEMA PERIPHERAL [None]
  - BACK PAIN [None]
  - PYREXIA [None]
  - LIP SWELLING [None]
  - DIZZINESS [None]
  - LETHARGY [None]
  - PAIN [None]
  - COMA [None]
  - SYNCOPE [None]
  - VOMITING [None]
  - NAUSEA [None]
  - DRY MOUTH [None]
  - HEADACHE [None]
  - ASTHENIA [None]
  - HEART RATE INCREASED [None]
  - MALAISE [None]
  - MUSCULOSKELETAL CHEST PAIN [None]
